FAERS Safety Report 5487633-9 (Version None)
Quarter: 2007Q4

REPORT INFORMATION
  Report Type: 
  Country: None (occurrence: None)
  Receive Date: 20071012
  Receipt Date: 20071012
  Transmission Date: 20080405
  Serious: Yes (Other)
  Sender: FDA-Public Use
  Company Number: None

PATIENT
  Age: 54 Year
  Sex: Female
  Weight: 56.6996 kg

DRUGS (1)
  1. PACLITAXEL [Suspect]
     Indication: BREAST CANCER
     Dosage: ONCE IV
     Route: 042
     Dates: start: 20070416, end: 20070416

REACTIONS (3)
  - MYALGIA [None]
  - NEUROPATHY [None]
  - PAIN [None]
